FAERS Safety Report 4755736-X (Version None)
Quarter: 2005Q3

REPORT INFORMATION
  Report Type: 
  Country: None (occurrence: None)
  Receive Date: 20050830
  Receipt Date: 20050718
  Transmission Date: 20060218
  Serious: No
  Sender: FDA-Public Use
  Company Number: US-BRISTOL-MYERS SQUIBB COMPANY-13040712

PATIENT
  Age: 50 Year
  Sex: Male
  Weight: 86 kg

DRUGS (3)
  1. ABILIFY [Suspect]
     Indication: ANXIETY
     Dates: start: 20050701
  2. ABILIFY [Suspect]
     Indication: SCHIZOPHRENIA
     Dates: start: 20050701
  3. ZOLOFT [Concomitant]

REACTIONS (1)
  - INSOMNIA [None]
